FAERS Safety Report 25845430 (Version 1)
Quarter: 2025Q3

REPORT INFORMATION
  Report Type: Spontaneous
  Country: US (occurrence: US)
  Receive Date: 20250925
  Receipt Date: 20250925
  Transmission Date: 20251021
  Serious: Yes (Death, Life-Threatening, Hospitalization, Other)
  Sender: AUROBINDO
  Company Number: US-Accord-502800

PATIENT
  Age: 30 Year
  Sex: Female

DRUGS (5)
  1. DEXAMETHASONE [Suspect]
     Active Substance: DEXAMETHASONE
     Indication: Haemophagocytic lymphohistiocytosis
     Route: 042
     Dates: start: 20241213, end: 20241228
  2. ETOPOSIDE [Suspect]
     Active Substance: ETOPOSIDE
     Indication: Haemophagocytic lymphohistiocytosis
     Route: 065
     Dates: start: 20241213, end: 202412
  3. VINCRISTINE [Concomitant]
     Active Substance: VINCRISTINE
     Indication: Haemophagocytic lymphohistiocytosis
     Route: 065
     Dates: start: 20241219
  4. VINCRISTINE [Concomitant]
     Active Substance: VINCRISTINE
     Indication: Salvage therapy
  5. GRANULOCYTE COLONY-STIMULATING FACTOR NOS [Concomitant]
     Active Substance: GRANULOCYTE COLONY-STIMULATING FACTOR NOS
     Indication: Supportive care
     Route: 065

REACTIONS (13)
  - Neutropenia [Fatal]
  - Myelosuppression [Fatal]
  - Pancytopenia [Fatal]
  - Cytomegalovirus viraemia [Fatal]
  - Acute respiratory distress syndrome [Fatal]
  - Pneumonia cytomegaloviral [Fatal]
  - Pneumonia parainfluenzae viral [Fatal]
  - Viral sepsis [Fatal]
  - Deep vein thrombosis [Unknown]
  - Respiratory failure [Fatal]
  - Acute myocardial infarction [Fatal]
  - Multiple organ dysfunction syndrome [Fatal]
  - Shock haemorrhagic [Fatal]

NARRATIVE: CASE EVENT DATE: 20241201
